FAERS Safety Report 12620927 (Version 4)
Quarter: 2016Q3

REPORT INFORMATION
  Report Type: Spontaneous
  Country: TR (occurrence: TR)
  Receive Date: 20160804
  Receipt Date: 20160913
  Transmission Date: 20161109
  Serious: Yes (Other)
  Sender: FDA-Public Use
  Company Number: TR-SUN PHARMACEUTICAL INDUSTRIES LTD-2016RR-121461

PATIENT
  Age: 56 Year
  Sex: Female

DRUGS (1)
  1. LEVETIRACETAM. [Suspect]
     Active Substance: LEVETIRACETAM
     Indication: EPILEPSY
     Dosage: 1000 MG, DAILY
     Route: 065

REACTIONS (4)
  - Deja vu [Recovered/Resolved]
  - Adjustment disorder [Recovered/Resolved]
  - Psychotic disorder [Recovered/Resolved]
  - Hallucination, visual [Recovered/Resolved]
